FAERS Safety Report 23626417 (Version 1)
Quarter: 2024Q1

REPORT INFORMATION
  Report Type: Spontaneous
  Country: US (occurrence: None)
  Receive Date: 20240312
  Receipt Date: 20240312
  Transmission Date: 20240410
  Serious: Yes (Life-Threatening, Hospitalization, Other)
  Sender: FDA-Public Use
  Company Number: None

PATIENT
  Age: 46 Year
  Sex: Female
  Weight: 108.1 kg

DRUGS (2)
  1. ASPIRIN [Suspect]
     Active Substance: ASPIRIN
     Indication: Deep vein thrombosis
     Dosage: FREQUENCY : TWICE A DAY;?
     Route: 048
     Dates: start: 20240219, end: 20240311
  2. ASPIRIN [Suspect]
     Active Substance: ASPIRIN
     Indication: Pulmonary embolism

REACTIONS (2)
  - Arthralgia [None]
  - Erythema [None]

NARRATIVE: CASE EVENT DATE: 20240311
